FAERS Safety Report 22192120 (Version 1)
Quarter: 2023Q2

REPORT INFORMATION
  Report Type: Spontaneous
  Country: US (occurrence: None)
  Receive Date: 20230408
  Receipt Date: 20230408
  Transmission Date: 20230721
  Serious: No
  Sender: FDA-Public Use
  Company Number: None

PATIENT
  Age: 68 Year
  Sex: Female
  Weight: 58.05 kg

DRUGS (1)
  1. REFRESH CELLUVISC [Suspect]
     Active Substance: CARBOXYMETHYLCELLULOSE SODIUM
     Indication: Dry eye
     Dosage: FREQUENCY : AT BEDTIME;?
     Route: 047
     Dates: start: 20230407, end: 20230407

REACTIONS (6)
  - Instillation site reaction [None]
  - Eye irritation [None]
  - Ocular hyperaemia [None]
  - Vision blurred [None]
  - Visual impairment [None]
  - Product lot number issue [None]

NARRATIVE: CASE EVENT DATE: 20230407
